FAERS Safety Report 5421534-7 (Version None)
Quarter: 2007Q3

REPORT INFORMATION
  Report Type: 
  Country: None (occurrence: None)
  Receive Date: 20070718
  Receipt Date: 20070320
  Transmission Date: 20080115
  Serious: Yes (Hospitalization, Other)
  Sender: FDA-Public Use
  Company Number: 2007001631

PATIENT
  Age: 45 Year
  Sex: Female
  Weight: 81.6 kg

DRUGS (2)
  1. CELEBREX [Suspect]
     Indication: ARTHRITIS
     Dosage: 100 MG (1 IN 1 D), ORAL
     Route: 048
     Dates: start: 19990701, end: 20030401
  2. CELEBREX [Suspect]
     Indication: PAIN
     Dosage: 100 MG (1 IN 1 D), ORAL
     Route: 048
     Dates: start: 19990701, end: 20030401

REACTIONS (2)
  - CEREBROVASCULAR ACCIDENT [None]
  - MYOCARDIAL INFARCTION [None]
